FAERS Safety Report 9527182 (Version 1)
Quarter: 2013Q3

REPORT INFORMATION
  Report Type: Spontaneous
  Country: US (occurrence: US)
  Receive Date: 20130916
  Receipt Date: 20130916
  Transmission Date: 20140515
  Serious: No
  Sender: FDA-Public Use
  Company Number: US-009507513-1309USA006880

PATIENT
  Age: 35 Year
  Sex: Female

DRUGS (2)
  1. CLARITIN LIQUIGELS [Suspect]
     Indication: THROAT IRRITATION
     Dosage: UNK, UNKNOWN
     Route: 048
     Dates: start: 2013
  2. CLARITIN LIQUIGELS [Suspect]
     Indication: EYE IRRITATION

REACTIONS (1)
  - Drug effect decreased [Unknown]
